FAERS Safety Report 9548590 (Version 4)
Quarter: 2013Q4

REPORT INFORMATION
  Report Type: Report from Study
  Country: CO (occurrence: CO)
  Receive Date: 20130924
  Receipt Date: 20131023
  Transmission Date: 20140711
  Serious: Yes (Hospitalization)
  Sender: FDA-Public Use
  Company Number: CO-TEVA-434091USA

PATIENT
  Age: 58 Year
  Sex: Female
  Weight: 60 kg

DRUGS (18)
  1. BENDAMUSTINE [Suspect]
     Indication: CHRONIC LYMPHOCYTIC LEUKAEMIA
     Dosage: 4 MILLIGRAM DAILY;
     Route: 042
     Dates: start: 20130813, end: 20130814
  2. RITUXIMAB [Suspect]
     Indication: CHRONIC LYMPHOCYTIC LEUKAEMIA
     Dosage: 21.4286 MILLIGRAM DAILY;
     Route: 042
     Dates: start: 20130812, end: 20130812
  3. IBRUTINIB/PLACEBO [Suspect]
     Indication: CHRONIC LYMPHOCYTIC LEUKAEMIA
     Dosage: 420 MILLIGRAM DAILY;
     Route: 048
     Dates: start: 20130813, end: 20130904
  4. OMEPRAZOLE [Concomitant]
     Indication: PROPHYLAXIS
     Dosage: 20 MILLIGRAM DAILY;
     Route: 048
     Dates: start: 20130911
  5. ACYCLOVIR [Concomitant]
     Indication: PROPHYLAXIS
     Dosage: 800 MILLIGRAM DAILY; EVERY 12 HOUR
     Route: 048
     Dates: start: 20130911
  6. ACYCLOVIR [Concomitant]
     Dosage: 400 MILLIGRAM DAILY;
     Route: 048
  7. FLUCONAZOLE [Concomitant]
     Indication: ANTIFUNGAL PROPHYLAXIS
     Dosage: 200 MILLIGRAM DAILY;
     Route: 048
     Dates: start: 20130911
  8. ALLOPURINOL [Concomitant]
     Indication: PROPHYLAXIS
     Dosage: 300 MILLIGRAM DAILY;
     Route: 048
     Dates: start: 20130911
  9. TRIMETHOPRIM [Concomitant]
     Indication: ANTIFUNGAL PROPHYLAXIS
     Dosage: 68.5714 MILLIGRAM DAILY; 1 DOSE EVERY 48 HOURS
     Route: 048
     Dates: start: 20130911
  10. FOLIC ACID [Concomitant]
     Indication: ANAEMIA
     Dosage: 1 MILLIGRAM DAILY;
     Route: 048
  11. ERYTHROPOIETIN HUMAN [Concomitant]
     Indication: ANAEMIA OF MALIGNANT DISEASE
     Route: 058
  12. CEFTRIAXONE [Concomitant]
     Indication: URINARY TRACT INFECTION
     Dosage: 2 GRAM DAILY;
     Route: 042
  13. HYDROCORTISONE [Concomitant]
     Indication: PROPHYLAXIS
     Dosage: 100 MILLIGRAM DAILY;
     Route: 042
  14. HYDROCORTISONE [Concomitant]
     Indication: PREMEDICATION
     Dosage: 3.5714 MILLIGRAM DAILY; 100 MG ONCE EVERY 4 WEEKS FOR PREMEDICATION WITH RITUXIMAB
  15. HUMAN IMMUNOGLOBULIN [Concomitant]
     Indication: HYPOGAMMAGLOBULINAEMIA
     Route: 042
  16. DIPHENHYDRAMINE [Concomitant]
     Indication: PROPHYLAXIS
     Dosage: 50 MILLIGRAM DAILY;
     Route: 048
  17. DIPHENHYDRAMINE [Concomitant]
     Indication: PREMEDICATION
     Dosage: 1.7857 MILLIGRAM DAILY;
     Route: 048
  18. B-HUMANA RECOMBINANT ERYTHROPOIETIN [Concomitant]
     Indication: ANAEMIA
     Route: 058

REACTIONS (2)
  - Pancytopenia [Recovered/Resolved]
  - Neutropenia [Recovered/Resolved]
